FAERS Safety Report 5858713-0 (Version None)
Quarter: 2008Q3

REPORT INFORMATION
  Report Type: 
  Country: None (occurrence: None)
  Receive Date: 20080826
  Receipt Date: 20080815
  Transmission Date: 20090109
  Serious: No
  Sender: FDA-Public Use
  Company Number: US-BOEHRINGER INGELHEIM GMBH, GERMANY-2008-BP-11245BP

PATIENT
  Age: 61 Year
  Sex: Female
  Weight: 80 kg

DRUGS (19)
  1. SPIRIVA [Suspect]
     Indication: ASTHMA
     Route: 055
     Dates: start: 20080401
  2. ADVAIR DISKUS 100/50 [Concomitant]
     Indication: ASTHMA
     Route: 055
     Dates: start: 20060101
  3. ALBUTEROL [Concomitant]
     Indication: ASTHMA
     Route: 055
     Dates: start: 20050101
  4. PRILOSEC [Concomitant]
     Indication: GASTROOESOPHAGEAL REFLUX DISEASE
     Route: 048
     Dates: start: 20060101
  5. ALVACPAZID [Concomitant]
     Indication: HYPERTENSION
     Route: 048
     Dates: start: 20060101
  6. TOPROL-XL [Concomitant]
     Indication: HYPERTENSION
     Route: 048
     Dates: start: 20060101
  7. ZOLOFT [Concomitant]
     Indication: DEPRESSION
     Route: 048
     Dates: start: 20060101
  8. ATIVAN [Concomitant]
     Indication: ANXIETY
     Route: 048
     Dates: start: 20060101
  9. LISINOPRIL [Concomitant]
     Indication: HYPERTENSION
     Route: 048
     Dates: start: 20060101
  10. SANCTURA [Concomitant]
     Indication: URINARY INCONTINENCE
     Route: 048
     Dates: start: 20060101
  11. LIPITOR [Concomitant]
     Indication: BLOOD CHOLESTEROL
     Route: 048
     Dates: start: 20060101
  12. ARICEPT [Concomitant]
     Indication: DEMENTIA
     Route: 048
     Dates: start: 20060101
  13. FLONASE [Concomitant]
     Indication: HYPERSENSITIVITY
     Route: 045
     Dates: start: 20060101
  14. FLONASE [Concomitant]
     Indication: ASTHMA
  15. LAMICTAL [Concomitant]
     Indication: DEMENTIA
     Route: 048
     Dates: start: 20060101
  16. ASPIRIN [Concomitant]
  17. VITAMIN TAB [Concomitant]
  18. ALDACTAZIDE [Concomitant]
  19. ZYRTEC [Concomitant]

REACTIONS (8)
  - ABNORMAL SENSATION IN EYE [None]
  - CYST [None]
  - DRY EYE [None]
  - EYE DISCHARGE [None]
  - EYE INFECTION VIRAL [None]
  - EYE IRRITATION [None]
  - EYE PRURITUS [None]
  - PHOTOPHOBIA [None]
